FAERS Safety Report 6456414-1 (Version None)
Quarter: 2009Q4

REPORT INFORMATION
  Report Type: 
  Country: None (occurrence: None)
  Receive Date: 20091125
  Receipt Date: 20091117
  Transmission Date: 20100525
  Serious: Yes (Death, Life-Threatening, Hospitalization, Other)
  Sender: FDA-Public Use
  Company Number: JP-PFIZER INC-2009288712

PATIENT
  Age: 60 Year
  Sex: Female
  Weight: 46 kg

DRUGS (8)
  1. AROMASIN [Suspect]
     Indication: BREAST CANCER
     Dosage: 25 MG, 1X/DAY
     Route: 048
     Dates: start: 20090115, end: 20090728
  2. TAXOL [Suspect]
     Indication: BREAST CANCER
     Dosage: 110 MG, 1X/DAY, ONCE A WEEK
     Route: 042
     Dates: start: 20090611, end: 20090709
  3. TAXOL [Suspect]
     Dosage: 95 MG, 1X/DAY
     Dates: start: 20090716, end: 20090723
  4. DECADRON [Concomitant]
     Route: 048
     Dates: start: 20090611, end: 20090726
  5. ZOFRAN [Concomitant]
     Route: 048
     Dates: start: 20090611, end: 20090726
  6. PRIMPERAN TAB [Concomitant]
     Route: 048
     Dates: start: 20090611, end: 20090726
  7. MUCOSTA [Concomitant]
     Route: 048
     Dates: start: 20090611, end: 20090726
  8. GASTER [Concomitant]
     Route: 048
     Dates: start: 20090611, end: 20090728

REACTIONS (5)
  - BREAST CANCER [None]
  - BRONCHITIS [None]
  - DISEASE PROGRESSION [None]
  - HYPOAESTHESIA [None]
  - PNEUMOCYSTIS JIROVECI PNEUMONIA [None]
